FAERS Safety Report 4299205-2 (Version None)
Quarter: 2004Q1

REPORT INFORMATION
  Report Type: 
  Country: None (occurrence: None)
  Receive Date: 20040219
  Receipt Date: 20031205
  Transmission Date: 20041129
  Serious: Yes (Life-Threatening, Disabling, Other)
  Sender: FDA-Public Use
  Company Number: CH-BRISTOL-MYERS SQUIBB COMPANY-12453353

PATIENT
  Age: 11 Month
  Sex: Male

DRUGS (6)
  1. ENDOXAN [Suspect]
     Indication: FIBROMATOSIS
     Dosage: 1ST CYCLE 25-AUG-2003.
     Route: 042
     Dates: start: 20030916, end: 20030916
  2. VINCRISTINE [Suspect]
     Indication: FIBROMATOSIS
     Dosage: 1ST CYCLE 25-AUG-2003.
     Route: 042
     Dates: start: 20030916, end: 20030916
  3. COSMEGEN [Suspect]
     Indication: FIBROMATOSIS
     Dosage: 1ST CYCLE 25-AUG-2003.
     Route: 042
     Dates: start: 20030916, end: 20030916
  4. DAFALGAN [Concomitant]
     Indication: PYREXIA
     Route: 048
     Dates: start: 20030923, end: 20030924
  5. BACTRIM [Concomitant]
     Route: 048
  6. UROMITEXAN [Concomitant]
     Route: 042
     Dates: start: 20030825, end: 20030923

REACTIONS (24)
  - BASE EXCESS NEGATIVE [None]
  - BLOOD BICARBONATE DECREASED [None]
  - BLOOD LACTIC ACID INCREASED [None]
  - CHOLESTASIS [None]
  - COAGULOPATHY [None]
  - CYTOLYTIC HEPATITIS [None]
  - HAEMOGLOBIN ABNORMAL [None]
  - HEPATIC ENCEPHALOPATHY [None]
  - HEPATIC FAILURE [None]
  - HEPATITIS FULMINANT [None]
  - HEPATOMEGALY [None]
  - HYPOGLYCAEMIA [None]
  - HYPOTONIA [None]
  - LABORATORY TEST ABNORMAL [None]
  - LIVER TRANSPLANT [None]
  - NEUTROPENIA [None]
  - PCO2 INCREASED [None]
  - PLATELET COUNT DECREASED [None]
  - PYREXIA [None]
  - TACHYCARDIA [None]
  - TACHYPNOEA [None]
  - VENOOCCLUSIVE LIVER DISEASE [None]
  - VOMITING [None]
  - WHITE BLOOD CELL COUNT DECREASED [None]
